FAERS Safety Report 12640650 (Version 1)
Quarter: 2016Q3

REPORT INFORMATION
  Report Type: Other
  Country: GB (occurrence: GB)
  Receive Date: 20160810
  Receipt Date: 20160810
  Transmission Date: 20161109
  Serious: Yes (Death)
  Sender: FDA-Public Use
  Company Number: GB-CELLTRION HEALTHCARE HUNGARY KFT-2016GB000014

PATIENT

DRUGS (11)
  1. CREON [Concomitant]
     Active Substance: PANCRELIPASE AMYLASE\PANCRELIPASE LIPASE\PANCRELIPASE PROTEASE
  2. COCODAMOL [Concomitant]
     Active Substance: ACETAMINOPHEN\CODEINE PHOSPHATE
  3. ACCRETE D3 [Concomitant]
  4. SULFASALAZINE. [Concomitant]
     Active Substance: SULFASALAZINE
  5. SALBUTAMOL [Concomitant]
     Active Substance: ALBUTEROL
  6. CARBOCISTEINE [Concomitant]
     Active Substance: CARBOCYSTEINE
  7. REMSIMA [Suspect]
     Active Substance: INFLIXIMAB
     Indication: ANKYLOSING SPONDYLITIS
     Dosage: UNK
     Route: 042
     Dates: start: 20151215, end: 20151215
  8. MONTELUKAST [Concomitant]
     Active Substance: MONTELUKAST SODIUM
  9. TEGRETOL [Concomitant]
     Active Substance: CARBAMAZEPINE
  10. OMEPRAZOLE. [Concomitant]
     Active Substance: OMEPRAZOLE
  11. TIOTROPIUM [Concomitant]
     Active Substance: TIOTROPIUM

REACTIONS (1)
  - Death [Fatal]

NARRATIVE: CASE EVENT DATE: 20151215
